FAERS Safety Report 25184589 (Version 1)
Quarter: 2025Q2

REPORT INFORMATION
  Report Type: Report from Study
  Country: US (occurrence: US)
  Receive Date: 20250410
  Receipt Date: 20250410
  Transmission Date: 20250716
  Serious: Yes (Other)
  Sender: TAKEDA
  Company Number: US-TAKEDA-2025TUS034945

PATIENT
  Age: 6 Year
  Sex: Female

DRUGS (1)
  1. VON WILLEBRAND FACTOR (RECOMBINANT) [Suspect]
     Active Substance: VON WILLEBRAND FACTOR (RECOMBINANT)
     Indication: Product used for unknown indication

REACTIONS (3)
  - Haematemesis [Unknown]
  - Head injury [Unknown]
  - Stress [Unknown]

NARRATIVE: CASE EVENT DATE: 20250402
